FAERS Safety Report 11794848 (Version 2)
Quarter: 2015Q4

REPORT INFORMATION
  Report Type: Report from Study
  Country: US (occurrence: US)
  Receive Date: 20151202
  Receipt Date: 20151221
  Transmission Date: 20160305
  Serious: Yes (Hospitalization)
  Sender: FDA-Public Use
  Company Number: US-BAYER-2015-418463

PATIENT
  Age: 78 Year
  Sex: Female

DRUGS (1)
  1. STIVARGA [Suspect]
     Active Substance: REGORAFENIB
     Indication: COLORECTAL CANCER
     Dosage: 160 MG, QD
     Route: 048
     Dates: start: 20150728, end: 201508

REACTIONS (9)
  - Abdominal pain [Recovered/Resolved]
  - Mobility decreased [None]
  - Diarrhoea [None]
  - Appendicitis perforated [Recovered/Resolved]
  - Rash [None]
  - Peritonitis [None]
  - Abscess [None]
  - Asthenia [None]
  - Hypomagnesaemia [None]

NARRATIVE: CASE EVENT DATE: 201508
